FAERS Safety Report 9150137 (Version 2)
Quarter: 2016Q4

REPORT INFORMATION
  Report Type: Spontaneous
  Country: US (occurrence: US)
  Receive Date: 20130308
  Receipt Date: 20161215
  Transmission Date: 20170207
  Serious: Yes (Other)
  Sender: FDA-Public Use
  Company Number: US-ROCHE-1097353

PATIENT
  Age: 15 Year
  Sex: Female
  Weight: 43.13 kg

DRUGS (3)
  1. ACCUTANE [Suspect]
     Active Substance: ISOTRETINOIN
     Indication: ACNE
     Route: 065
     Dates: start: 1999
  2. ACCUTANE [Suspect]
     Active Substance: ISOTRETINOIN
     Route: 065
     Dates: start: 20000807, end: 200106
  3. ACCUTANE [Suspect]
     Active Substance: ISOTRETINOIN
     Route: 065
     Dates: start: 20010820, end: 20011024

REACTIONS (7)
  - Melanocytic naevus [Unknown]
  - Colitis [Unknown]
  - Depression [Unknown]
  - Dry skin [Unknown]
  - Inflammatory bowel disease [Unknown]
  - Mental disorder [Unknown]
  - Irritable bowel syndrome [Unknown]

NARRATIVE: CASE EVENT DATE: 20000922
